FAERS Safety Report 9839865 (Version 1)
Quarter: 2014Q1

REPORT INFORMATION
  Report Type: Report from Study
  Country: MX (occurrence: MX)
  Receive Date: 20140124
  Receipt Date: 20140124
  Transmission Date: 20141002
  Serious: Yes (Other)
  Sender: FDA-Public Use
  Company Number: PHHY2014MX008161

PATIENT
  Age: 81 Year
  Sex: Male

DRUGS (1)
  1. CO-DIOVAN [Suspect]
     Indication: HYPERTENSION
     Dosage: 1 COATED TABLET (160/12.5 MG) DAILY
     Route: 048

REACTIONS (1)
  - Eye disorder [Recovered/Resolved]
